FAERS Safety Report 12940461 (Version 1)
Quarter: 2016Q4

REPORT INFORMATION
  Report Type: Spontaneous
  Country: US (occurrence: US)
  Receive Date: 20161115
  Receipt Date: 20161115
  Transmission Date: 20170207
  Serious: No
  Sender: FDA-Public Use
  Company Number: None

PATIENT
  Age: 44 Year
  Sex: Male

DRUGS (1)
  1. 0.9% NACL INJECT M [Suspect]
     Active Substance: SODIUM CHLORIDE

REACTIONS (3)
  - Product contamination microbial [None]
  - Device related sepsis [None]
  - Enterobacter test positive [None]

NARRATIVE: CASE EVENT DATE: 20161109
